FAERS Safety Report 8150920-X (Version None)
Quarter: 2012Q1

REPORT INFORMATION
  Report Type: 
  Country: None (occurrence: None)
  Receive Date: 20120220
  Receipt Date: 20120210
  Transmission Date: 20120608
  Serious: Yes (Life-Threatening, Hospitalization, Other)
  Sender: FDA-Public Use
  Company Number: US-ABBOTT-12P-163-0903338-00

PATIENT
  Age: 49 Year
  Sex: Female

DRUGS (1)
  1. HUMIRA [Suspect]
     Indication: PSORIASIS
     Dates: start: 20081101, end: 20090401

REACTIONS (17)
  - NEUROMA [None]
  - LYMPHATIC DISORDER [None]
  - POSTOPERATIVE RESPIRATORY DISTRESS [None]
  - DISABILITY [None]
  - PAIN [None]
  - SCAR [None]
  - SEIZURE LIKE PHENOMENA [None]
  - JOINT RANGE OF MOTION DECREASED [None]
  - HEMIPARESIS [None]
  - NECK PAIN [None]
  - HEARING IMPAIRED [None]
  - DYSPHAGIA [None]
  - RADICAL NECK DISSECTION [None]
  - TONGUE NEOPLASM MALIGNANT STAGE UNSPECIFIED [None]
  - MASS [None]
  - CARDIO-RESPIRATORY ARREST [None]
  - SPEECH DISORDER [None]
